FAERS Safety Report 6300327-2 (Version None)
Quarter: 2009Q3

REPORT INFORMATION
  Report Type: 
  Country: None (occurrence: None)
  Receive Date: 20090804
  Receipt Date: 20090722
  Transmission Date: 20100115
  Serious: Yes (Hospitalization)
  Sender: FDA-Public Use
  Company Number: GXKR2009JP08365

PATIENT
  Age: 35 Year
  Sex: Female

DRUGS (1)
  1. CEFTRIAXONE [Suspect]
     Indication: DIVERTICULITIS
     Dosage: 2 G/DAY

REACTIONS (4)
  - BILIARY DRAINAGE [None]
  - CHOLELITHIASIS [None]
  - PANCREATIC SPHINCTEROTOMY [None]
  - PANCREATITIS ACUTE [None]
